FAERS Safety Report 4400732-5 (Version None)
Quarter: 2004Q3

REPORT INFORMATION
  Report Type: 
  Country: None (occurrence: None)
  Receive Date: 20040714
  Receipt Date: 20040630
  Transmission Date: 20050211
  Serious: Yes (Death)
  Sender: FDA-Public Use
  Company Number: 2004-BL-00115BL(1)

PATIENT
  Age: 68 Year
  Sex: Male

DRUGS (4)
  1. SPIRIVA [Suspect]
     Indication: CHRONIC OBSTRUCTIVE AIRWAYS DISEASE
     Dosage: 18 MCG (18 MCG, 1 IN 24 HR), IH
     Route: 055
     Dates: start: 20040519, end: 20040524
  2. SERETIDE (NR) [Concomitant]
  3. DUOVENT (DUOVENT) (NR) [Concomitant]
  4. SELOKEN (METOPROLOL TARTRATE) (NR) [Concomitant]

REACTIONS (3)
  - GASTRIC HAEMORRHAGE [None]
  - GASTROINTESTINAL HAEMORRHAGE [None]
  - OESOPHAGEAL HAEMORRHAGE [None]
